FAERS Safety Report 10382379 (Version 2)
Quarter: 2014Q3

REPORT INFORMATION
  Report Type: Spontaneous
  Country: US (occurrence: None)
  Receive Date: 20140811
  Receipt Date: 20140929
  Transmission Date: 20150326
  Serious: Yes (Hospitalization)
  Sender: FDA-Public Use
  Company Number: US-001136

PATIENT
  Sex: Female

DRUGS (2)
  1. SOLUTION FOR PAENTERAL SYNDROME [Concomitant]
  2. GATTEX [Suspect]
     Active Substance: TEDUGLUTIDE\WATER
     Indication: SHORT-BOWEL SYNDROME
     Route: 058

REACTIONS (3)
  - Local swelling [None]
  - Swelling face [None]
  - Pain [None]
